FAERS Safety Report 8262143-4 (Version None)
Quarter: 2012Q2

REPORT INFORMATION
  Report Type: 
  Country: None (occurrence: None)
  Receive Date: 20120405
  Receipt Date: 20120327
  Transmission Date: 20120825
  Serious: Yes (Other)
  Sender: FDA-Public Use
  Company Number: US-ROCHE-1027011

PATIENT
  Sex: Male

DRUGS (1)
  1. ZELBORAF [Suspect]
     Indication: MALIGNANT MELANOMA
     Route: 048
     Dates: start: 20110706

REACTIONS (11)
  - VISUAL IMPAIRMENT [None]
  - SKIN PAPILLOMA [None]
  - ARTHRALGIA [None]
  - MELANOCYTIC NAEVUS [None]
  - CONSTIPATION [None]
  - HEADACHE [None]
  - NEOPLASM [None]
  - FATIGUE [None]
  - AMNESIA [None]
  - SWELLING [None]
  - DECREASED APPETITE [None]
